FAERS Safety Report 4606552-0 (Version None)
Quarter: 2005Q2

REPORT INFORMATION
  Report Type: 
  Country: None (occurrence: None)
  Receive Date: 20050223
  Receipt Date: 20040818
  Transmission Date: 20051028
  Serious: Yes (Hospitalization)
  Sender: FDA-Public Use
  Company Number: WAES 0408USA01545

PATIENT
  Age: 63 Year
  Sex: Male
  Weight: 98.8842 kg

DRUGS (9)
  1. ZOCOR [Suspect]
     Indication: HYPERCHOLESTEROLAEMIA
     Dosage: 40 MG/DAILY/PO
     Route: 048
     Dates: end: 20040801
  2. ACTOS [Concomitant]
  3. AVAPRO [Concomitant]
  4. LASIX [Concomitant]
  5. LOPID [Concomitant]
  6. NITRO-DUR [Concomitant]
  7. PLAVIX [Concomitant]
  8. ASPIRIN [Concomitant]
  9. METOPROLOL [Concomitant]

REACTIONS (2)
  - BLOOD CREATININE INCREASED [None]
  - RHABDOMYOLYSIS [None]
